FAERS Safety Report 15409869 (Version 1)
Quarter: 2018Q3

REPORT INFORMATION
  Report Type: Spontaneous
  Country: US (occurrence: US)
  Receive Date: 20180920
  Receipt Date: 20180920
  Transmission Date: 20181010
  Serious: Yes (Hospitalization)
  Sender: FDA-Public Use
  Company Number: US-ASTRAZENECA-2018SF19465

PATIENT
  Age: 66 Year
  Sex: Female
  Weight: 54.9 kg

DRUGS (2)
  1. BEVESPI AEROSPHERE [Suspect]
     Active Substance: FORMOTEROL FUMARATE\GLYCOPYRROLATE
     Indication: LUNG DISORDER
     Dosage: TWO PUFFS TWICE A DAY
     Route: 055
     Dates: start: 201801
  2. BEVESPI AEROSPHERE [Suspect]
     Active Substance: FORMOTEROL FUMARATE\GLYCOPYRROLATE
     Indication: BRONCHIECTASIS
     Dosage: TWO PUFFS TWICE A DAY
     Route: 055
     Dates: start: 201801

REACTIONS (5)
  - Pneumonia [Unknown]
  - Product use in unapproved indication [Unknown]
  - Off label use [Not Recovered/Not Resolved]
  - Underdose [Not Recovered/Not Resolved]
  - Wrong technique in product usage process [Not Recovered/Not Resolved]

NARRATIVE: CASE EVENT DATE: 2018
